FAERS Safety Report 8492283-6 (Version None)
Quarter: 2012Q3

REPORT INFORMATION
  Report Type: 
  Country: None (occurrence: None)
  Receive Date: 20120706
  Receipt Date: 20120626
  Transmission Date: 20120928
  Serious: Yes (Other)
  Sender: FDA-Public Use
  Company Number: JP-VERTEX PHARMACEUTICALS INC.-AE-2012-009768

PATIENT
  Age: 67 Year
  Sex: Male

DRUGS (6)
  1. PEG-INTRON [Concomitant]
     Route: 058
     Dates: start: 20120619, end: 20120622
  2. REBETOL [Concomitant]
     Route: 048
     Dates: start: 20120626
  3. TELAVIC (TELAPREVIR) [Suspect]
     Indication: HEPATITIS C
     Route: 048
     Dates: start: 20120619, end: 20120622
  4. TELAVIC (TELAPREVIR) [Suspect]
     Route: 048
     Dates: start: 20120626
  5. PEG-INTRON [Concomitant]
     Route: 058
     Dates: start: 20120626
  6. REBETOL [Concomitant]
     Indication: HEPATITIS C
     Route: 048
     Dates: start: 20120619, end: 20120622

REACTIONS (1)
  - RENAL DISORDER [None]
